FAERS Safety Report 5254197-4 (Version None)
Quarter: 2007Q1

REPORT INFORMATION
  Report Type: 
  Country: None (occurrence: None)
  Receive Date: 20070302
  Receipt Date: 20070227
  Transmission Date: 20070707
  Serious: Yes (Other)
  Sender: FDA-Public Use
  Company Number: DE-JNJFOC-20070205972

PATIENT
  Age: 13 Year
  Sex: Female

DRUGS (2)
  1. REMICADE [Suspect]
     Indication: CROHN'S DISEASE
     Dosage: 1ST INFUSION 5 BOTTLES
     Route: 048
  2. CORTISONE ACETATE [Concomitant]
     Route: 065

REACTIONS (2)
  - RASH [None]
  - RASH PUSTULAR [None]
